FAERS Safety Report 20936384 (Version 2)
Quarter: 2022Q2

REPORT INFORMATION
  Report Type: Spontaneous
  Country: FR (occurrence: FR)
  Receive Date: 20220609
  Receipt Date: 20220624
  Transmission Date: 20220721
  Serious: Yes (Hospitalization)
  Sender: FDA-Public Use
  Company Number: FR-TEVA-2022-FR-2043484

PATIENT
  Age: 57 Year
  Sex: Male

DRUGS (2)
  1. EVEROLIMUS [Interacting]
     Active Substance: EVEROLIMUS
     Indication: Immunosuppressant drug therapy
     Route: 065
  2. APIXABAN [Interacting]
     Active Substance: APIXABAN
     Indication: Congestive cardiomyopathy
     Dosage: 5 MILLIGRAM DAILY;
     Route: 065

REACTIONS (2)
  - Gastroduodenal haemorrhage [Recovering/Resolving]
  - Drug interaction [Unknown]
